FAERS Safety Report 25410531 (Version 1)
Quarter: 2025Q2

REPORT INFORMATION
  Report Type: Spontaneous
  Country: US (occurrence: US)
  Receive Date: 20250608
  Receipt Date: 20250608
  Transmission Date: 20250717
  Serious: No
  Sender: BAUSCH AND LOMB
  Company Number: US-BAUSCHBL-2025BNL009866

PATIENT
  Sex: Female

DRUGS (2)
  1. BROMFENAC [Suspect]
     Active Substance: BROMFENAC
     Indication: Postoperative care
     Route: 047
     Dates: start: 20250519
  2. PREDNISONE [Concomitant]
     Active Substance: PREDNISONE
     Indication: Product used for unknown indication

REACTIONS (2)
  - Headache [Unknown]
  - Product use complaint [Unknown]
